FAERS Safety Report 6048973-8 (Version None)
Quarter: 2009Q1

REPORT INFORMATION
  Report Type: 
  Country: None (occurrence: None)
  Receive Date: 20090123
  Receipt Date: 20090116
  Transmission Date: 20090719
  Serious: Yes (Death)
  Sender: FDA-Public Use
  Company Number: A0764886A

PATIENT
  Sex: Male
  Weight: 109.1 kg

DRUGS (2)
  1. AVANDIA [Suspect]
     Dosage: 4MG TWICE PER DAY
     Route: 048
     Dates: start: 20020604, end: 20060801
  2. GLYBURIDE [Concomitant]

REACTIONS (6)
  - CARDIAC ARREST [None]
  - DEATH [None]
  - DYSPNOEA [None]
  - FATIGUE [None]
  - FLUID RETENTION [None]
  - MYOCARDIAL INFARCTION [None]
